FAERS Safety Report 20300254 (Version 1)
Quarter: 2022Q1

REPORT INFORMATION
  Report Type: Spontaneous
  Country: US (occurrence: None)
  Receive Date: 20220105
  Receipt Date: 20220105
  Transmission Date: 20220423
  Serious: Yes (Other)
  Sender: FDA-Public Use
  Company Number: None

PATIENT
  Age: 58 Year
  Sex: Male
  Weight: 86.4 kg

DRUGS (6)
  1. BARICITINIB [Suspect]
     Active Substance: BARICITINIB
     Indication: COVID-19
     Dosage: FREQUENCY : DAILY;?
     Route: 048
     Dates: start: 20211223, end: 20220105
  2. Dexamethasone 6 mg IV daily [Concomitant]
     Dates: start: 20211223, end: 20211231
  3. Dexamethasone 20 mg IV daily [Concomitant]
  4. Enoxaparin 40 mg SC daily [Concomitant]
     Dates: start: 20211223, end: 20211229
  5. Enoxaparin 90 mg SC BID [Concomitant]
     Dates: start: 20211229
  6. Remdesivir 200 mg x 1, then 100 mg IV daily [Concomitant]
     Dates: start: 20211223, end: 20211227

REACTIONS (1)
  - Pulmonary embolism [None]

NARRATIVE: CASE EVENT DATE: 20211230
